FAERS Safety Report 9122658 (Version 1)
Quarter: 2013Q1

REPORT INFORMATION
  Report Type: Spontaneous
  Country: US (occurrence: None)
  Receive Date: 20130130
  Receipt Date: 20130130
  Transmission Date: 20140127
  Serious: Yes (Death)
  Sender: FDA-Public Use
  Company Number: B0859621A

PATIENT
  Age: 54 Year
  Sex: Female

DRUGS (9)
  1. LAMOTRIGINE [Suspect]
     Route: 048
  2. HYDROXYZINE [Suspect]
     Route: 048
  3. RISPERIDONE [Suspect]
     Route: 048
  4. AMLODIPINE [Suspect]
     Route: 048
  5. BUSPIRONE [Suspect]
     Route: 048
  6. FLUOXETINE [Suspect]
     Route: 048
  7. GABAPENTIN [Suspect]
     Route: 048
  8. LISINOPRIL [Suspect]
     Route: 048
  9. OXCARBAZEPINE [Suspect]
     Route: 048

REACTIONS (1)
  - Completed suicide [None]
